FAERS Safety Report 7021553-3 (Version None)
Quarter: 2010Q3

REPORT INFORMATION
  Report Type: 
  Country: None (occurrence: None)
  Receive Date: 20100928
  Receipt Date: 20100914
  Transmission Date: 20110219
  Serious: Yes (Death, Hospitalization)
  Sender: FDA-Public Use
  Company Number: ES201009003743

PATIENT
  Age: 82 Year
  Sex: Male
  Weight: 68 kg

DRUGS (25)
  1. NECITUMUMAB (11F8) (NECITUMUMA) (11F8) LIQUID [Suspect]
     Indication: COLORECTAL CANCER METASTATIC
     Dosage: 800 MG;INTRAVENOUS
     Route: 042
     Dates: start: 20080318, end: 20080820
  2. OXALIPLATIN [Suspect]
     Indication: COLORECTAL CANCER METASTATIC
     Dosage: 155.21 MG INTRAVENOUS
     Route: 042
     Dates: start: 20080318, end: 20080820
  3. *5-FU (5-FU) UNKNOWN [Suspect]
     Indication: COLORECTAL CANCER METASTATIC
     Dosage: 4382.4 MG, INTRAVENOUS
     Route: 042
     Dates: start: 20080318, end: 20080820
  4. *FOLINIC ACID (FOLINIC ACID) UNKNOWN [Suspect]
     Indication: COLORECTAL CANCER METASTATIC
     Dosage: 730.4 MG, INTRAVENOUS
     Route: 042
     Dates: start: 20080318, end: 20080820
  5. ENALAPRIL MALEATE [Concomitant]
  6. HYDROCHLOROTHIAZIDE [Concomitant]
  7. LORAZEPAM [Concomitant]
  8. PENTOXIFYLLINE [Concomitant]
  9. FUROSEMIDE [Concomitant]
  10. CEFEPIME [Concomitant]
  11. AZITHROMYCIN [Concomitant]
  12. COTRIM [Concomitant]
  13. DEXAMETHASONE [Concomitant]
  14. OMEPRAZOLE [Concomitant]
  15. ENOXAPARIN SODIUM [Concomitant]
  16. ACETAMINOPHEN [Concomitant]
  17. METAMIZOL [Concomitant]
  18. NULYTELY [Concomitant]
  19. FERROGLYCINE SULFATE COMPLEX (FERROGLYCINE SULFATE COMPLEX) [Concomitant]
  20. GABAPENTINE (GABAPENTIN) [Concomitant]
  21. BUDESONIDE [Concomitant]
  22. MORPHINE [Concomitant]
  23. HALOPERIDOL [Concomitant]
  24. FENTANYL-100 [Concomitant]
  25. IPRATROPIUM BROMIDE [Concomitant]

REACTIONS (5)
  - ASTHENIA [None]
  - NEUTROPHIL COUNT DECREASED [None]
  - ORGANISING PNEUMONIA [None]
  - RESPIRATORY FAILURE [None]
  - WHITE BLOOD CELL COUNT DECREASED [None]
